FAERS Safety Report 13442470 (Version 1)
Quarter: 2017Q2

REPORT INFORMATION
  Report Type: Spontaneous
  Country: US (occurrence: US)
  Receive Date: 20170413
  Receipt Date: 20170413
  Transmission Date: 20170830
  Serious: No
  Sender: FDA-Public Use
  Company Number: None

PATIENT
  Age: 74 Year
  Sex: Female
  Weight: 54 kg

DRUGS (2)
  1. ZETIA [Concomitant]
     Active Substance: EZETIMIBE
  2. XIIDRA [Suspect]
     Active Substance: LIFITEGRAST
     Indication: DRY EYE
     Dosage: ?          QUANTITY:1 DROP(S);OTHER FREQUENCY:EACH EYE TWICE DAY;?
     Route: 047
     Dates: start: 20161209, end: 20170218

REACTIONS (2)
  - Dysgeusia [None]
  - Ageusia [None]

NARRATIVE: CASE EVENT DATE: 20161209
